FAERS Safety Report 6050940-5 (Version None)
Quarter: 2009Q1

REPORT INFORMATION
  Report Type: 
  Country: None (occurrence: None)
  Receive Date: 20090126
  Receipt Date: 20080806
  Transmission Date: 20090719
  Serious: No
  Sender: FDA-Public Use
  Company Number: US-TYCO HEALTHCARE/MALLINCKRODT-T200801264

PATIENT

DRUGS (3)
  1. OPTIRAY 300 [Suspect]
     Indication: COMPUTERISED TOMOGRAM
     Dosage: 100 ML, SINGLE
     Route: 042
     Dates: start: 20080805, end: 20080805
  2. UNASYN [Concomitant]
     Dosage: 1.5 G, Q 6 HR
     Route: 042
  3. FENTANYL CITRATE [Concomitant]
     Dosage: 25 UG, ONCE WEEKLY
     Route: 062

REACTIONS (1)
  - INJECTION SITE PAIN [None]
